FAERS Safety Report 22056397 (Version 1)
Quarter: 2023Q1

REPORT INFORMATION
  Report Type: Spontaneous
  Country: US (occurrence: US)
  Receive Date: 20230302
  Receipt Date: 20230302
  Transmission Date: 20230417
  Serious: Yes (Hospitalization)
  Sender: FDA-Public Use
  Company Number: US-BRISTOL-MYERS SQUIBB COMPANY-2023-029060

PATIENT
  Age: 81 Year
  Sex: Female
  Weight: 3 kg

DRUGS (23)
  1. REVLIMID [Suspect]
     Active Substance: LENALIDOMIDE
     Indication: Myelodysplastic syndrome
     Route: 048
     Dates: start: 20230205
  2. ATORVASTATIN [Concomitant]
     Active Substance: ATORVASTATIN
  3. FUROSEMIDE [Concomitant]
     Active Substance: FUROSEMIDE
  4. GABAPENTIN [Concomitant]
     Active Substance: GABAPENTIN
  5. HYDROCHLOROTHIAZIDE [Concomitant]
     Active Substance: HYDROCHLOROTHIAZIDE
  6. JANUVIA [Concomitant]
     Active Substance: SITAGLIPTIN PHOSPHATE
  7. LANTUS [Concomitant]
     Active Substance: INSULIN GLARGINE
  8. METOPROLOL [Concomitant]
     Active Substance: METOPROLOL
  9. OCTREOTIDE [Concomitant]
     Active Substance: OCTREOTIDE
  10. OMEPRAZOLE [Concomitant]
     Active Substance: OMEPRAZOLE
  11. POTASSIUM [Concomitant]
     Active Substance: POTASSIUM
  12. PROMACTA [Concomitant]
     Active Substance: ELTROMBOPAG OLAMINE
  13. SERTRALINE [Concomitant]
     Active Substance: SERTRALINE HYDROCHLORIDE
  14. SYMBICORT [Concomitant]
     Active Substance: BUDESONIDE\FORMOTEROL FUMARATE DIHYDRATE
  15. TRAMADOL [Concomitant]
     Active Substance: TRAMADOL
  16. ZOLPIDEM [Concomitant]
     Active Substance: ZOLPIDEM TARTRATE
  17. COLACE [Concomitant]
     Active Substance: DOCUSATE SODIUM
  18. DIPHENHYDRAMINE [Concomitant]
     Active Substance: DIPHENHYDRAMINE
  19. IRON [Concomitant]
     Active Substance: IRON
  20. MINERALS\VITAMINS [Concomitant]
     Active Substance: MINERALS\VITAMINS
  21. PROBIOTIC [BIFIDOBACTERIUM INFANTIS;LACTOBACILLUS ACIDOPHILUS] [Concomitant]
  22. ERGOCALCIFEROL [Concomitant]
     Active Substance: ERGOCALCIFEROL
  23. CALCIUM WITH VITAMIN D [CALCIUM PHOSPHATE;CALCIUM SODIUM LACTATE;ERGOC [Concomitant]

REACTIONS (2)
  - Oxygen saturation abnormal [Unknown]
  - Bacterial infection [Unknown]

NARRATIVE: CASE EVENT DATE: 20230224
